FAERS Safety Report 6120142-2 (Version None)
Quarter: 2009Q1

REPORT INFORMATION
  Report Type: 
  Country: None (occurrence: None)
  Receive Date: 20090312
  Receipt Date: 20090226
  Transmission Date: 20090719
  Serious: Yes (Hospitalization)
  Sender: FDA-Public Use
  Company Number: CIO09000647

PATIENT
  Age: 18 Month
  Sex: Female

DRUGS (1)
  1. VAPORUB, FORM/VERSION UNKNOWN(CAMPHOR 129-150 MG, CEDAR LEAF OIL UNKNO [Suspect]
     Indication: UPPER RESPIRATORY TRACT INFECTION
     Dosage: TOPICAL
     Route: 061

REACTIONS (11)
  - BRONCHIAL WALL THICKENING [None]
  - DRUG ADMINISTRATION ERROR [None]
  - DYSPNOEA [None]
  - HYPOXIA [None]
  - ILL-DEFINED DISORDER [None]
  - INCORRECT ROUTE OF DRUG ADMINISTRATION [None]
  - INTERCOSTAL RETRACTION [None]
  - NO THERAPEUTIC RESPONSE [None]
  - OXYGEN SATURATION DECREASED [None]
  - RESPIRATORY DISTRESS [None]
  - WHEEZING [None]
